FAERS Safety Report 20763465 (Version 2)
Quarter: 2022Q3

REPORT INFORMATION
  Report Type: Spontaneous
  Country: US (occurrence: US)
  Receive Date: 20220428
  Receipt Date: 20220902
  Transmission Date: 20221027
  Serious: No
  Sender: FDA-Public Use
  Company Number: US-PFIZER INC-202200483498

PATIENT
  Age: 59 Year
  Sex: Female

DRUGS (2)
  1. IBRANCE [Suspect]
     Active Substance: PALBOCICLIB
     Indication: Breast cancer female
     Dosage: 125 MG, CYCLIC, [TAKE 1 CAPSULE (125 MG TOTAL) DAILY FOR 21 DAYS ON, THEN 7 DAYS OFF]
     Route: 048
     Dates: start: 20220308
  2. IBRANCE [Suspect]
     Active Substance: PALBOCICLIB
     Dosage: 100 MG
     Dates: start: 20220824

REACTIONS (10)
  - Fatigue [Unknown]
  - Loss of personal independence in daily activities [Unknown]
  - Rash [Recovered/Resolved]
  - Constipation [Recovering/Resolving]
  - Depression [Unknown]
  - Tongue disorder [Recovered/Resolved]
  - Vitamin B12 decreased [Unknown]
  - Sleep disorder [Unknown]
  - Cognitive disorder [Unknown]
  - Memory impairment [Unknown]
